FAERS Safety Report 11603250 (Version 7)
Quarter: 2016Q4

REPORT INFORMATION
  Report Type: Report from Study
  Country: JP (occurrence: JP)
  Receive Date: 20151006
  Receipt Date: 20161107
  Transmission Date: 20170206
  Serious: Yes (Hospitalization)
  Sender: FDA-Public Use
  Company Number: PHJP2015JP017074

PATIENT
  Age: 18 Year
  Sex: Male
  Weight: 42 kg

DRUGS (73)
  1. CERTICAN [Suspect]
     Active Substance: EVEROLIMUS
     Dosage: 0.75 MG, QD
     Route: 048
     Dates: start: 20130607
  2. CERTICAN [Suspect]
     Active Substance: EVEROLIMUS
     Dosage: 2 MG, QD
     Route: 048
     Dates: start: 20160209
  3. NEORAL [Concomitant]
     Active Substance: CYCLOSPORINE
     Dosage: 200 MG, UNK
     Route: 048
     Dates: start: 20120805, end: 20120806
  4. NEORAL [Concomitant]
     Active Substance: CYCLOSPORINE
     Dosage: 400 MG, UNK
     Route: 048
     Dates: start: 20120905, end: 20120906
  5. NEORAL [Concomitant]
     Active Substance: CYCLOSPORINE
     Dosage: 300 MG, UNK
     Route: 048
     Dates: start: 20120915, end: 20121008
  6. NEORAL [Concomitant]
     Active Substance: CYCLOSPORINE
     Dosage: 60 MG, UNK
     Route: 048
     Dates: start: 20130607
  7. NEORAL [Concomitant]
     Active Substance: CYCLOSPORINE
     Dosage: 80 MG, UNK
     Route: 048
     Dates: start: 20131129, end: 20140731
  8. NEORAL [Concomitant]
     Active Substance: CYCLOSPORINE
     Dosage: 70 MG, UNK
     Route: 048
     Dates: start: 20140801, end: 20141211
  9. NEORAL [Concomitant]
     Active Substance: CYCLOSPORINE
     Dosage: 60 MG, UNK
     Route: 048
     Dates: start: 20141212, end: 20150521
  10. SANDIMMUN [Concomitant]
     Active Substance: CYCLOSPORINE
     Indication: HEART TRANSPLANT
     Dosage: 200 MG, UNK
     Route: 041
     Dates: start: 20121009, end: 20121010
  11. SANDIMMUN [Concomitant]
     Active Substance: CYCLOSPORINE
     Dosage: 40 MG, UNK
     Route: 041
     Dates: start: 20121026, end: 20121101
  12. SANDIMMUN [Concomitant]
     Active Substance: CYCLOSPORINE
     Dosage: 30 MG, UNK
     Route: 041
     Dates: start: 20121108, end: 20121119
  13. TACROLIMUS. [Concomitant]
     Active Substance: TACROLIMUS
     Dosage: 5 MG, UNK
     Route: 048
     Dates: start: 20120715, end: 20120722
  14. TACROLIMUS. [Concomitant]
     Active Substance: TACROLIMUS
     Dosage: 1 MG, UNK
     Route: 042
     Dates: start: 20120726, end: 20120729
  15. TACROLIMUS. [Concomitant]
     Active Substance: TACROLIMUS
     Dosage: 0.25 MG, UNK
     Route: 042
     Dates: start: 20120730, end: 20120730
  16. CELLCEPT [Concomitant]
     Active Substance: MYCOPHENOLATE MOFETIL\MYCOPHENOLATE MOFETIL HYDROCHLORIDE
     Indication: HEART TRANSPLANT
     Dosage: 1 G, UNK
     Route: 048
     Dates: start: 20120713, end: 20120718
  17. CELLCEPT [Concomitant]
     Active Substance: MYCOPHENOLATE MOFETIL\MYCOPHENOLATE MOFETIL HYDROCHLORIDE
     Dosage: 1 G, UNK
     Route: 048
     Dates: start: 20130226, end: 20130307
  18. CERTICAN [Suspect]
     Active Substance: EVEROLIMUS
     Dosage: 2 MG, QD
     Route: 048
     Dates: start: 20121025, end: 20130111
  19. CERTICAN [Suspect]
     Active Substance: EVEROLIMUS
     Dosage: 2 MG, QD
     Route: 048
     Dates: start: 20130225, end: 20130307
  20. NEORAL [Concomitant]
     Active Substance: CYCLOSPORINE
     Dosage: 300 MG, UNK
     Route: 048
     Dates: start: 20120807, end: 20120807
  21. NEORAL [Concomitant]
     Active Substance: CYCLOSPORINE
     Dosage: 400 MG, UNK
     Route: 048
     Dates: start: 20120821, end: 20120827
  22. NEORAL [Concomitant]
     Active Substance: CYCLOSPORINE
     Dosage: 100 MG, UNK
     Route: 048
     Dates: start: 20130219, end: 20130222
  23. SANDIMMUN [Concomitant]
     Active Substance: CYCLOSPORINE
     Dosage: 20 MG, UNK
     Route: 041
     Dates: start: 20121105, end: 20121107
  24. SANDIMMUN [Concomitant]
     Active Substance: CYCLOSPORINE
     Dosage: 45 MG, UNK
     Route: 041
     Dates: start: 20121130, end: 20130125
  25. SANDIMMUN [Concomitant]
     Active Substance: CYCLOSPORINE
     Dosage: 50 MG, UNK
     Route: 041
     Dates: start: 20130126
  26. PREDONINE [Concomitant]
     Active Substance: PREDNISOLONE\PREDNISOLONE ACETATE\PREDNISOLONE SODIUM SUCCINATE
     Indication: HEART TRANSPLANT
     Dosage: 5 MG, UNK
     Route: 048
     Dates: end: 20120726
  27. TACROLIMUS. [Concomitant]
     Active Substance: TACROLIMUS
     Dosage: 3 MG, UNK
     Route: 048
     Dates: start: 20160209
  28. ENALAPRIL [Concomitant]
     Active Substance: ENALAPRIL
     Indication: HYPERTENSION
     Dosage: 2.5 MG, UNK
     Route: 048
  29. NEORAL [Concomitant]
     Active Substance: CYCLOSPORINE
     Dosage: 150 MG, UNK
     Route: 048
     Dates: start: 20130217, end: 20130218
  30. SANDIMMUN [Concomitant]
     Active Substance: CYCLOSPORINE
     Dosage: 150 MG, UNK
     Route: 041
     Dates: start: 20121011, end: 20121012
  31. PREDONINE [Concomitant]
     Active Substance: PREDNISOLONE\PREDNISOLONE ACETATE\PREDNISOLONE SODIUM SUCCINATE
     Dosage: 5 MG, UNK
     Route: 048
     Dates: start: 20130823
  32. MYCOPHENOLATE MOFETIL. [Concomitant]
     Active Substance: MYCOPHENOLATE MOFETIL
     Dosage: 2 G, UNK
     Route: 048
     Dates: start: 20130111, end: 20130225
  33. TACROLIMUS. [Concomitant]
     Active Substance: TACROLIMUS
     Dosage: 5 MG, UNK
     Route: 048
     Dates: end: 20160208
  34. RENIVACE [Concomitant]
     Active Substance: ENALAPRIL
     Indication: HYPERTENSION
     Dosage: 2.5 MG, UNK
     Route: 048
     Dates: start: 20120125, end: 20120726
  35. CERTICAN [Suspect]
     Active Substance: EVEROLIMUS
     Dosage: 1.5 MG, QD
     Route: 048
     Dates: start: 20120820, end: 20120920
  36. NEORAL [Concomitant]
     Active Substance: CYCLOSPORINE
     Dosage: 400 MG, UNK
     Route: 048
     Dates: start: 20120808, end: 20120812
  37. NEORAL [Concomitant]
     Active Substance: CYCLOSPORINE
     Dosage: 100 MG, UNK
     Route: 048
     Dates: start: 20130302, end: 20130606
  38. SANDIMMUN [Concomitant]
     Active Substance: CYCLOSPORINE
     Dosage: 50 MG, UNK
     Route: 041
     Dates: start: 20121128, end: 20121129
  39. PREDONINE [Concomitant]
     Active Substance: PREDNISOLONE\PREDNISOLONE ACETATE\PREDNISOLONE SODIUM SUCCINATE
     Dosage: 10 MG, UNK
     Route: 048
     Dates: start: 20130215, end: 20130606
  40. PREDONINE [Concomitant]
     Active Substance: PREDNISOLONE\PREDNISOLONE ACETATE\PREDNISOLONE SODIUM SUCCINATE
     Dosage: 7.5 MG, UNK
     Route: 048
     Dates: start: 20130607
  41. LIPITOR [Concomitant]
     Active Substance: ATORVASTATIN CALCIUM
     Indication: HYPERLIPIDAEMIA
     Dosage: 5 MG, UNK
     Route: 048
     Dates: start: 20120125, end: 20120726
  42. CERTICAN [Suspect]
     Active Substance: EVEROLIMUS
     Dosage: 1.75 MG, QD
     Route: 048
     Dates: start: 20120921, end: 20121008
  43. CERTICAN [Suspect]
     Active Substance: EVEROLIMUS
     Dosage: 1.5 MG, QD
     Route: 048
     Dates: start: 20160202, end: 20160203
  44. CERTICAN [Suspect]
     Active Substance: EVEROLIMUS
     Dosage: 0.5 MG, QD
     Route: 048
     Dates: start: 20160204, end: 20160208
  45. NEORAL [Concomitant]
     Active Substance: CYCLOSPORINE
     Dosage: 200 MG, UNK
     Route: 048
     Dates: start: 20120907, end: 20140914
  46. NEORAL [Concomitant]
     Active Substance: CYCLOSPORINE
     Dosage: 70 MG, UNK
     Route: 048
     Dates: start: 20150522
  47. SANDIMMUN [Concomitant]
     Active Substance: CYCLOSPORINE
     Dosage: 40 MG, UNK
     Route: 041
     Dates: start: 20121120, end: 20121127
  48. PREDONINE [Concomitant]
     Active Substance: PREDNISOLONE\PREDNISOLONE ACETATE\PREDNISOLONE SODIUM SUCCINATE
     Dosage: 5 MG, UNK
     Route: 048
     Dates: start: 20160108
  49. MYCOPHENOLATE MOFETIL. [Concomitant]
     Active Substance: MYCOPHENOLATE MOFETIL
     Indication: HEART TRANSPLANT
     Dosage: 2000 MG, UNK
     Route: 048
     Dates: end: 20120712
  50. TACROLIMUS. [Concomitant]
     Active Substance: TACROLIMUS
     Dosage: 0.4 MG, UNK
     Route: 042
     Dates: start: 20120731, end: 20120802
  51. LIPITOR [Concomitant]
     Active Substance: ATORVASTATIN CALCIUM
     Dosage: 10 MG, UNK
     Route: 048
     Dates: start: 20130326
  52. MICARDIS [Concomitant]
     Active Substance: TELMISARTAN
     Indication: HYPERTENSION
     Dosage: 20 MG, UNK
     Route: 048
     Dates: start: 20130326
  53. CERTICAN [Suspect]
     Active Substance: EVEROLIMUS
     Dosage: 2 MG, QD
     Route: 048
     Dates: start: 20120721, end: 20120726
  54. PRAVASTATIN. [Concomitant]
     Active Substance: PRAVASTATIN
     Indication: HYPERLIPIDAEMIA
     Dosage: 10 MG, UNK
     Route: 048
  55. NEORAL [Concomitant]
     Active Substance: CYCLOSPORINE
     Indication: HEART TRANSPLANT
     Dosage: 100 MG, UNK
     Route: 048
     Dates: start: 20120803, end: 20120804
  56. NEORAL [Concomitant]
     Active Substance: CYCLOSPORINE
     Dosage: 600 MG, UNK
     Route: 048
     Dates: start: 20120831, end: 20120904
  57. NEORAL [Concomitant]
     Active Substance: CYCLOSPORINE
     Dosage: 200 MG, UNK
     Route: 048
     Dates: start: 20130215, end: 20130216
  58. MYCOPHENOLATE MOFETIL. [Concomitant]
     Active Substance: MYCOPHENOLATE MOFETIL
     Dosage: 1000 MG, UNK
     Route: 048
     Dates: start: 20151013, end: 20160208
  59. CERTICAN [Suspect]
     Active Substance: EVEROLIMUS
     Dosage: 1 MG, QD
     Route: 048
     Dates: start: 20130325, end: 20130606
  60. CERTICAN [Suspect]
     Active Substance: EVEROLIMUS
     Dosage: 0.5 MG, QD
     Route: 048
     Dates: start: 20130712
  61. NEORAL [Concomitant]
     Active Substance: CYCLOSPORINE
     Dosage: 600 MG, UNK
     Route: 048
     Dates: start: 20120813, end: 20120814
  62. SANDIMMUN [Concomitant]
     Active Substance: CYCLOSPORINE
     Dosage: 50 MG, UNK
     Route: 041
     Dates: start: 20121013, end: 20121014
  63. SANDIMMUN [Concomitant]
     Active Substance: CYCLOSPORINE
     Dosage: 30 MG, UNK
     Route: 041
     Dates: start: 20121015, end: 20121025
  64. TACROLIMUS. [Concomitant]
     Active Substance: TACROLIMUS
     Indication: HEART TRANSPLANT
     Dosage: 8 MG, UNK
     Route: 048
     Dates: start: 20120712, end: 20120712
  65. TACROLIMUS. [Concomitant]
     Active Substance: TACROLIMUS
     Dosage: 6 MG, UNK
     Route: 048
     Dates: start: 20120713, end: 20120714
  66. CERTICAN [Suspect]
     Active Substance: EVEROLIMUS
     Indication: HEART TRANSPLANT
     Dosage: 1.5 MG, QD
     Route: 048
     Dates: start: 20120712, end: 20120720
  67. CERTICAN [Suspect]
     Active Substance: EVEROLIMUS
     Dosage: 3 MG, QD
     Route: 048
     Dates: start: 20121009, end: 20121024
  68. CERTICAN [Suspect]
     Active Substance: EVEROLIMUS
     Dosage: 1.5 MG, QD
     Route: 048
     Dates: start: 20130308, end: 20130324
  69. NEORAL [Concomitant]
     Active Substance: CYCLOSPORINE
     Dosage: 800 MG, UNK
     Route: 048
     Dates: start: 20120815, end: 20120820
  70. NEORAL [Concomitant]
     Active Substance: CYCLOSPORINE
     Dosage: 800 MG, UNK
     Route: 048
     Dates: start: 20120828, end: 20120830
  71. NEORAL [Concomitant]
     Active Substance: CYCLOSPORINE
     Dosage: 150 MG, UNK
     Route: 048
     Dates: start: 20130223, end: 20130301
  72. SANDIMMUN [Concomitant]
     Active Substance: CYCLOSPORINE
     Dosage: 30 MG, UNK
     Route: 041
     Dates: start: 20121102, end: 20121104
  73. TACROLIMUS. [Concomitant]
     Active Substance: TACROLIMUS
     Dosage: 4 MG, UNK
     Route: 048
     Dates: start: 20120723, end: 20120726

REACTIONS (5)
  - Pyrexia [Unknown]
  - Immunosuppressant drug level decreased [Unknown]
  - Abdominal pain lower [Unknown]
  - Blood bilirubin increased [Not Recovered/Not Resolved]
  - Intestinal perforation [Recovering/Resolving]

NARRATIVE: CASE EVENT DATE: 20120724
